FAERS Safety Report 9678125 (Version 3)
Quarter: 2013Q4

REPORT INFORMATION
  Report Type: Report from Study
  Country: GB (occurrence: GB)
  Receive Date: 20131108
  Receipt Date: 20131205
  Transmission Date: 20140711
  Serious: Yes (Death)
  Sender: FDA-Public Use
  Company Number: GB-B.I. PHARMACEUTICALS,INC./RIDGEFIELD-2013-BI-35787UK

PATIENT
  Age: 56 Year
  Sex: Male
  Weight: 86.6 kg

DRUGS (1)
  1. AFATINIB [Suspect]
     Indication: NON-SMALL CELL LUNG CANCER
     Dosage: 40 MG
     Route: 048
     Dates: start: 20130913, end: 20131028

REACTIONS (2)
  - Hypoxia [Fatal]
  - Lung neoplasm malignant [Fatal]
